FAERS Safety Report 9842183 (Version 3)
Quarter: 2014Q1

REPORT INFORMATION
  Report Type: Report from Study
  Country: US (occurrence: US)
  Receive Date: 20140124
  Receipt Date: 20140204
  Transmission Date: 20141002
  Serious: Yes (Other)
  Sender: FDA-Public Use
  Company Number: US-ROCHE-1333091

PATIENT
  Sex: Female
  Weight: 63.56 kg

DRUGS (6)
  1. AVASTIN [Suspect]
     Indication: NEUROFIBROMATOSIS
     Route: 042
     Dates: start: 20110621
  2. ACETAMINOPHEN [Concomitant]
  3. GABAPENTIN [Concomitant]
     Route: 048
     Dates: start: 2011
  4. PAMELOR [Concomitant]
     Indication: DEPRESSION
     Route: 048
  5. TOPAMAX [Concomitant]
     Indication: CONVULSION
     Route: 048
  6. ZOFRAN [Concomitant]
     Indication: NAUSEA
     Route: 048
     Dates: start: 201106

REACTIONS (3)
  - Blindness unilateral [Unknown]
  - Deafness [Unknown]
  - Eyelid ptosis [Unknown]
